FAERS Safety Report 21060593 (Version 1)
Quarter: 2022Q3

REPORT INFORMATION
  Report Type: Report from Study
  Country: US (occurrence: US)
  Receive Date: 20220708
  Receipt Date: 20220708
  Transmission Date: 20221027
  Serious: Yes (Hospitalization, Other)
  Sender: FDA-Public Use
  Company Number: US-TEVA-2022-US-2054013

PATIENT
  Age: 24 Year
  Sex: Male
  Weight: 89.8 kg

DRUGS (8)
  1. VINCRISTINE [Suspect]
     Active Substance: VINCRISTINE
     Indication: Acute lymphocytic leukaemia
     Dosage: DOSE: 2 MG
     Route: 042
     Dates: start: 20200814
  2. VINCRISTINE [Suspect]
     Active Substance: VINCRISTINE
     Dosage: DOSE: 2 MG
     Route: 042
     Dates: start: 20220524
  3. METHOTREXATE [Suspect]
     Active Substance: METHOTREXATE
     Indication: Acute lymphocytic leukaemia
     Dosage: DOSE: 15 MG
     Route: 048
     Dates: start: 20200814
  4. METHOTREXATE [Suspect]
     Active Substance: METHOTREXATE
     Dosage: DOSE: 15 MG
     Route: 048
     Dates: start: 20220610
  5. MERCAPTOPURINE [Suspect]
     Active Substance: MERCAPTOPURINE
     Indication: Acute lymphocytic leukaemia
     Dosage: DOSE: 50 MG
     Route: 048
     Dates: start: 20200814
  6. MERCAPTOPURINE [Suspect]
     Active Substance: MERCAPTOPURINE
     Dosage: DOSE: 50 MG
     Route: 048
     Dates: start: 20220612
  7. RUXOLITINIB [Suspect]
     Active Substance: RUXOLITINIB
     Indication: Acute lymphocytic leukaemia
     Dosage: 200 MILLIGRAM DAILY; 100 MG BID
     Route: 048
     Dates: start: 20200814
  8. RUXOLITINIB [Suspect]
     Active Substance: RUXOLITINIB
     Dosage: 200 MILLIGRAM DAILY; 100 MG BID
     Route: 048
     Dates: start: 20220509

REACTIONS (3)
  - Dyspnoea [Not Recovered/Not Resolved]
  - Pyrexia [Not Recovered/Not Resolved]
  - Hypoxia [Unknown]

NARRATIVE: CASE EVENT DATE: 20220601
